FAERS Safety Report 12965332 (Version 2)
Quarter: 2017Q1

REPORT INFORMATION
  Report Type: Spontaneous
  Country: US (occurrence: US)
  Receive Date: 20161122
  Receipt Date: 20170111
  Transmission Date: 20170428
  Serious: Yes (Hospitalization)
  Sender: FDA-Public Use
  Company Number: US-SMITH AND NEPHEW, INC-2016SMT01016

PATIENT
  Sex: Male

DRUGS (1)
  1. REGRANEX [Suspect]
     Active Substance: BECAPLERMIN
     Indication: WOUND
     Dosage: UNK, 1X/DAY
     Route: 061
     Dates: start: 201610, end: 2016

REACTIONS (4)
  - Peripheral vascular disorder [Unknown]
  - Gangrene [Unknown]
  - Foot amputation [Recovered/Resolved with Sequelae]
  - Wound complication [Recovering/Resolving]

NARRATIVE: CASE EVENT DATE: 2016
